FAERS Safety Report 10207323 (Version 1)
Quarter: 2014Q2

REPORT INFORMATION
  Report Type: Spontaneous
  Country: US (occurrence: US)
  Receive Date: 20140530
  Receipt Date: 20140530
  Transmission Date: 20141212
  Serious: No
  Sender: FDA-Public Use
  Company Number: US-GLAXOSMITHKLINE-A1034375A

PATIENT
  Age: 56 Year
  Sex: Male

DRUGS (4)
  1. VENTOLIN [Suspect]
     Indication: CHRONIC OBSTRUCTIVE PULMONARY DISEASE
     Route: 055
  2. OXYCONTIN [Concomitant]
  3. CLONAZEPAM [Concomitant]
  4. SIMVASTATIN [Concomitant]

REACTIONS (5)
  - Dyspnoea [Unknown]
  - Ill-defined disorder [Unknown]
  - Secretion discharge [Unknown]
  - Panic attack [Unknown]
  - Product quality issue [Unknown]
